FAERS Safety Report 17760438 (Version 1)
Quarter: 2020Q2

REPORT INFORMATION
  Report Type: Spontaneous
  Country: US (occurrence: US)
  Receive Date: 20200507
  Receipt Date: 20200507
  Transmission Date: 20200714
  Serious: Yes (Hospitalization)
  Sender: FDA-Public Use
  Company Number: None

PATIENT
  Age: 82 Year
  Sex: Female

DRUGS (1)
  1. LEVULAN KERASTICK [Suspect]
     Active Substance: AMINOLEVULINIC ACID HYDROCHLORIDE

REACTIONS (6)
  - Confusional state [None]
  - Hypotension [None]
  - Feeling of body temperature change [None]
  - Disorientation [None]
  - Photopsia [None]
  - Application site pain [None]

NARRATIVE: CASE EVENT DATE: 20200404
